FAERS Safety Report 8360586-1 (Version None)
Quarter: 2012Q2

REPORT INFORMATION
  Report Type: 
  Country: None (occurrence: None)
  Receive Date: 20120515
  Receipt Date: 20120507
  Transmission Date: 20120825
  Serious: Yes (Death)
  Sender: FDA-Public Use
  Company Number: US-NOVOPROD-351146

PATIENT
  Age: 16 Year
  Sex: Female

DRUGS (1)
  1. NORDITROPIN [Suspect]
     Indication: BODY HEIGHT BELOW NORMAL

REACTIONS (1)
  - BONE SARCOMA [None]
